FAERS Safety Report 21489269 (Version 1)
Quarter: 2022Q4

REPORT INFORMATION
  Report Type: Report from Study
  Country: US (occurrence: US)
  Receive Date: 20221021
  Receipt Date: 20221021
  Transmission Date: 20230113
  Serious: Yes (Other)
  Sender: FDA-Public Use
  Company Number: US-BoehringerIngelheim-2021-BI-141956

PATIENT
  Age: 72 Year
  Sex: Male
  Weight: 88.9 kg

DRUGS (5)
  1. OFEV [Suspect]
     Active Substance: NINTEDANIB
     Indication: Idiopathic pulmonary fibrosis
     Route: 048
     Dates: start: 20211104
  2. REMODULIN [Concomitant]
     Active Substance: TREPROSTINIL
     Indication: Pulmonary arterial hypertension
     Dosage: CONTINUING
     Route: 042
     Dates: start: 20210629
  3. REMODULIN [Concomitant]
     Active Substance: TREPROSTINIL
     Dosage: CONTINUING
     Route: 042
  4. OPSUMIT [Concomitant]
     Active Substance: MACITENTAN
     Indication: Product used for unknown indication
  5. SILDENAFIL CITRATE [Concomitant]
     Active Substance: SILDENAFIL CITRATE
     Indication: Product used for unknown indication

REACTIONS (10)
  - Pulmonary hypertension [Unknown]
  - Dyspnoea [Unknown]
  - Sputum discoloured [Unknown]
  - Pneumonia [Unknown]
  - Faeces discoloured [Unknown]
  - Nausea [Unknown]
  - Vision blurred [Unknown]
  - Diarrhoea [Unknown]
  - Tinea infection [Unknown]
  - Lacrimation increased [Unknown]
